FAERS Safety Report 6979744-3 (Version None)
Quarter: 2010Q3

REPORT INFORMATION
  Report Type: 
  Country: None (occurrence: None)
  Receive Date: 20100914
  Receipt Date: 20100511
  Transmission Date: 20110219
  Serious: Yes (Hospitalization, Disabling)
  Sender: FDA-Public Use
  Company Number: GB-RANBAXY-2010RR-36550

PATIENT
  Age: 70 Year
  Sex: Male

DRUGS (8)
  1. ASPIRIN [Suspect]
     Dosage: 300 MG, UNK
  2. CIPROFLOXACIN [Suspect]
     Indication: CELLULITIS
     Dosage: 750 MG, BID
     Route: 048
  3. CLOPIDOGREL [Suspect]
     Dosage: 300 MG, UNK
     Route: 048
  4. ERYTHROMYCIN [Suspect]
     Indication: CELLULITIS
     Dosage: 250 MG, QID
     Route: 048
  5. METRONIDAZOLE [Suspect]
     Dosage: 400 MG, TID
     Route: 048
  6. WARFARIN SODIUM [Suspect]
     Indication: PULMONARY EMBOLISM
  7. MEROPENEM [Concomitant]
     Indication: CELLULITIS
     Dosage: 2 MG, BID
     Route: 051
  8. TEICOPLANIN [Concomitant]
     Indication: CELLULITIS
     Dosage: 400 MG, QD
     Route: 030

REACTIONS (2)
  - COAGULATION TIME PROLONGED [None]
  - DRUG INTERACTION [None]
